FAERS Safety Report 9706581 (Version 1)
Quarter: 2013Q4

REPORT INFORMATION
  Report Type: Spontaneous
  Country: DE (occurrence: DE)
  Receive Date: 20131125
  Receipt Date: 20131125
  Transmission Date: 20140711
  Serious: Yes (Hospitalization)
  Sender: FDA-Public Use
  Company Number: DE-MERCK-1311DEU008882

PATIENT
  Age: 20 Year
  Sex: Male
  Weight: 99 kg

DRUGS (2)
  1. MIRTAZAPIN STADA [Suspect]
     Dosage: 30 MG, QD
     Route: 048
     Dates: start: 20120801, end: 20130207
  2. THYROXIN [Concomitant]
     Indication: HYPOTHYROIDISM
     Dosage: 75 MICROGRAM, QD
     Route: 048
     Dates: start: 20120801

REACTIONS (2)
  - Weight increased [Recovering/Resolving]
  - Hyperlipidaemia [Recovering/Resolving]
